FAERS Safety Report 6030309-X (Version None)
Quarter: 2009Q1

REPORT INFORMATION
  Report Type: 
  Country: None (occurrence: None)
  Receive Date: 20090107
  Receipt Date: 20081201
  Transmission Date: 20090719
  Serious: Yes (Death, Hospitalization)
  Sender: FDA-Public Use
  Company Number: AU-PFIZER INC-2008079934

PATIENT

DRUGS (1)
  1. SUTENT [Suspect]
     Indication: RENAL CELL CARCINOMA
     Route: 048

REACTIONS (3)
  - DEATH [None]
  - DISEASE PROGRESSION [None]
  - RENAL CELL CARCINOMA [None]
